FAERS Safety Report 26092943 (Version 1)
Quarter: 2025Q4

REPORT INFORMATION
  Report Type: Spontaneous
  Country: US (occurrence: US)
  Receive Date: 20251126
  Receipt Date: 20251126
  Transmission Date: 20260119
  Serious: No
  Sender: BAYER HEALTHCARE LLC
  Company Number: US-BAYER-2025A156443

PATIENT
  Age: 60 Year
  Sex: Male

DRUGS (2)
  1. MIRALAX [Suspect]
     Active Substance: POLYETHYLENE GLYCOL 3350
     Indication: Colonoscopy
     Dosage: 2 DF, QD, 14 DOSES OF MIRALAX MIXED IN 28OZ OF GATORADE
     Route: 048
  2. DULCOLAX (DOCUSATE SODIUM) [Suspect]
     Active Substance: DOCUSATE SODIUM
     Indication: Colonoscopy
     Dosage: 2 DF, 3 O^CLOCK AND 7 O^CLOCK
     Route: 048

REACTIONS (1)
  - Product prescribing issue [Unknown]
